FAERS Safety Report 19073896 (Version 1)
Quarter: 2021Q1

REPORT INFORMATION
  Report Type: Spontaneous
  Country: US (occurrence: US)
  Receive Date: 20210330
  Receipt Date: 20210330
  Transmission Date: 20210420
  Serious: No
  Sender: FDA-Public Use
  Company Number: US-PFIZER INC-2021318589

PATIENT
  Age: 71 Year
  Sex: Male
  Weight: 72.56 kg

DRUGS (2)
  1. SIMPONI [Concomitant]
     Active Substance: GOLIMUMAB
     Dosage: UNK
  2. SUTENT [Suspect]
     Active Substance: SUNITINIB MALATE
     Dosage: 50 MG, CYCLIC (1 CAP DAILY DAYS 1?28 OF 42 DAY CYCLE)
     Route: 048

REACTIONS (2)
  - Ageusia [Not Recovered/Not Resolved]
  - Dyspepsia [Not Recovered/Not Resolved]
